FAERS Safety Report 12919528 (Version 3)
Quarter: 2017Q1

REPORT INFORMATION
  Report Type: Spontaneous
  Country: US (occurrence: US)
  Receive Date: 20161108
  Receipt Date: 20170209
  Transmission Date: 20170428
  Serious: No
  Sender: FDA-Public Use
  Company Number: US-NOVEL LABORATORIES, INC-2016-04320

PATIENT
  Age: 2 Month
  Sex: Female
  Weight: 4.2 kg

DRUGS (4)
  1. PEPCID [Suspect]
     Active Substance: FAMOTIDINE
     Dosage: 40 MG/5 ML
     Route: 048
  2. PEPCID [Suspect]
     Active Substance: FAMOTIDINE
     Indication: GASTROOESOPHAGEAL REFLUX DISEASE
     Dosage: 40 MG/5 ML
     Route: 048
     Dates: start: 20160909, end: 20160909
  3. PEPCID [Suspect]
     Active Substance: FAMOTIDINE
     Indication: GASTROOESOPHAGEAL REFLUX DISEASE
     Dosage: 40 MG/5 ML
     Route: 048
     Dates: start: 20160909, end: 20160909
  4. PEPCID [Suspect]
     Active Substance: FAMOTIDINE
     Dosage: 40 MG/5 ML
     Route: 048

REACTIONS (2)
  - Insomnia [Recovered/Resolved]
  - Psychomotor hyperactivity [Recovered/Resolved]

NARRATIVE: CASE EVENT DATE: 20160909
